FAERS Safety Report 20674512 (Version 1)
Quarter: 2022Q2

REPORT INFORMATION
  Report Type: Spontaneous
  Country: US (occurrence: US)
  Receive Date: 20220405
  Receipt Date: 20220405
  Transmission Date: 20220721
  Serious: No
  Sender: FDA-Public Use
  Company Number: US-PFIZER INC-2021685145

PATIENT
  Age: 69 Year
  Sex: Female
  Weight: 38.56 kg

DRUGS (1)
  1. XANAX [Suspect]
     Active Substance: ALPRAZOLAM
     Dosage: 0.5 MG, 4X/DAY

REACTIONS (5)
  - Gait disturbance [Unknown]
  - Pain [Unknown]
  - Illness [Unknown]
  - Poor quality product administered [Unknown]
  - Product prescribing issue [Unknown]
